FAERS Safety Report 25629478 (Version 1)
Quarter: 2025Q3

REPORT INFORMATION
  Report Type: Spontaneous
  Country: EU (occurrence: EU)
  Receive Date: 20250731
  Receipt Date: 20250731
  Transmission Date: 20251021
  Serious: Yes (Other)
  Sender: MYLAN
  Company Number: None

PATIENT
  Age: 37 Year
  Sex: Male

DRUGS (32)
  1. PREGABALIN [Suspect]
     Active Substance: PREGABALIN
     Indication: Product used for unknown indication
  2. PREGABALIN [Suspect]
     Active Substance: PREGABALIN
     Route: 065
  3. PREGABALIN [Suspect]
     Active Substance: PREGABALIN
     Route: 065
  4. PREGABALIN [Suspect]
     Active Substance: PREGABALIN
  5. BROMAZEPAM [Suspect]
     Active Substance: BROMAZEPAM
     Indication: Product used for unknown indication
  6. BROMAZEPAM [Suspect]
     Active Substance: BROMAZEPAM
     Route: 065
  7. BROMAZEPAM [Suspect]
     Active Substance: BROMAZEPAM
     Route: 065
  8. BROMAZEPAM [Suspect]
     Active Substance: BROMAZEPAM
  9. LORAZEPAM [Suspect]
     Active Substance: LORAZEPAM
     Indication: Product used for unknown indication
  10. LORAZEPAM [Suspect]
     Active Substance: LORAZEPAM
     Route: 065
  11. LORAZEPAM [Suspect]
     Active Substance: LORAZEPAM
     Route: 065
  12. LORAZEPAM [Suspect]
     Active Substance: LORAZEPAM
  13. CANNABIS SATIVA SUBSP. INDICA TOP [Suspect]
     Active Substance: CANNABIS SATIVA SUBSP. INDICA TOP
     Indication: Product used for unknown indication
  14. CANNABIS SATIVA SUBSP. INDICA TOP [Suspect]
     Active Substance: CANNABIS SATIVA SUBSP. INDICA TOP
     Route: 065
  15. CANNABIS SATIVA SUBSP. INDICA TOP [Suspect]
     Active Substance: CANNABIS SATIVA SUBSP. INDICA TOP
     Route: 065
  16. CANNABIS SATIVA SUBSP. INDICA TOP [Suspect]
     Active Substance: CANNABIS SATIVA SUBSP. INDICA TOP
  17. COCAINE [Suspect]
     Active Substance: COCAINE
     Indication: Product used for unknown indication
  18. COCAINE [Suspect]
     Active Substance: COCAINE
     Route: 065
  19. COCAINE [Suspect]
     Active Substance: COCAINE
     Route: 065
  20. COCAINE [Suspect]
     Active Substance: COCAINE
  21. CODEINE [Suspect]
     Active Substance: CODEINE
     Indication: Product used for unknown indication
  22. CODEINE [Suspect]
     Active Substance: CODEINE
     Route: 065
  23. CODEINE [Suspect]
     Active Substance: CODEINE
     Route: 065
  24. CODEINE [Suspect]
     Active Substance: CODEINE
  25. NORDAZEPAM [Suspect]
     Active Substance: NORDAZEPAM
     Indication: Product used for unknown indication
  26. NORDAZEPAM [Suspect]
     Active Substance: NORDAZEPAM
     Route: 065
  27. NORDAZEPAM [Suspect]
     Active Substance: NORDAZEPAM
     Route: 065
  28. NORDAZEPAM [Suspect]
     Active Substance: NORDAZEPAM
  29. ZOPICLONE [Concomitant]
     Active Substance: ZOPICLONE
  30. ZOPICLONE [Concomitant]
     Active Substance: ZOPICLONE
     Route: 065
  31. ZOPICLONE [Concomitant]
     Active Substance: ZOPICLONE
     Route: 065
  32. ZOPICLONE [Concomitant]
     Active Substance: ZOPICLONE

REACTIONS (3)
  - Substance use disorder [Unknown]
  - Drug use disorder [Unknown]
  - Generalised tonic-clonic seizure [Recovered/Resolved]

NARRATIVE: CASE EVENT DATE: 20250528
